FAERS Safety Report 11279649 (Version 1)
Quarter: 2015Q3

REPORT INFORMATION
  Report Type: Spontaneous
  Country: US (occurrence: US)
  Receive Date: 20150717
  Receipt Date: 20150717
  Transmission Date: 20151125
  Serious: No
  Sender: FDA-Public Use
  Company Number: US-HORIZON-PEN-0115-2015

PATIENT
  Age: 85 Year
  Sex: Female

DRUGS (2)
  1. PENNSAID [Suspect]
     Active Substance: DICLOFENAC SODIUM
     Indication: OSTEOARTHRITIS
     Route: 061
     Dates: start: 20150701
  2. SOTALOL. [Concomitant]
     Active Substance: SOTALOL

REACTIONS (2)
  - No adverse event [Unknown]
  - Product quality issue [Not Recovered/Not Resolved]
